FAERS Safety Report 9216713 (Version 1)
Quarter: 2013Q2

REPORT INFORMATION
  Report Type: Spontaneous
  Country: JP (occurrence: None)
  Receive Date: 20130404
  Receipt Date: 20130404
  Transmission Date: 20140414
  Serious: Yes (Other)
  Sender: FDA-Public Use
  Company Number: TCI2012A06061

PATIENT
  Sex: Female

DRUGS (1)
  1. NESINA [Suspect]
     Route: 048

REACTIONS (1)
  - Pancreatitis acute [None]
